FAERS Safety Report 25203036 (Version 1)
Quarter: 2025Q2

REPORT INFORMATION
  Report Type: Spontaneous
  Country: CN (occurrence: CN)
  Receive Date: 20250416
  Receipt Date: 20250416
  Transmission Date: 20250716
  Serious: Yes (Hospitalization, Other)
  Sender: RANBAXY
  Company Number: CN-SUN PHARMACEUTICAL INDUSTRIES LTD-2025R1-503032

PATIENT
  Sex: Female

DRUGS (5)
  1. HYDROCHLOROTHIAZIDE [Suspect]
     Active Substance: HYDROCHLOROTHIAZIDE
     Indication: Hyperinsulinism
     Route: 065
  2. DIAZOXIDE [Suspect]
     Active Substance: DIAZOXIDE
     Indication: Hyperinsulinism
     Dosage: 15 MILLIGRAM/KILOGRAM/DAY
     Route: 065
  3. DIAZOXIDE [Suspect]
     Active Substance: DIAZOXIDE
     Route: 065
  4. MALTODEXTRIN [Suspect]
     Active Substance: MALTODEXTRIN
     Indication: Hyperinsulinism
     Route: 065
  5. MALTODEXTRIN [Suspect]
     Active Substance: MALTODEXTRIN
     Route: 065

REACTIONS (1)
  - Condition aggravated [Unknown]
